FAERS Safety Report 17321387 (Version 1)
Quarter: 2020Q1

REPORT INFORMATION
  Report Type: Other
  Country: US (occurrence: US)
  Receive Date: 20200126
  Receipt Date: 20200126
  Transmission Date: 20200409
  Serious: No
  Sender: FDA-Public Use
  Company Number: US-ACORDA-ACO_158476_2019

PATIENT
  Age: 72 Year
  Sex: Female

DRUGS (11)
  1. NORCO [Concomitant]
     Active Substance: ACETAMINOPHEN\HYDROCODONE BITARTRATE
     Indication: PAIN
     Dosage: 5-325 MILLIGRAM BID (PRN)
     Route: 048
  2. ZOLOFT [Concomitant]
     Active Substance: SERTRALINE HYDROCHLORIDE
     Indication: PRODUCT USED FOR UNKNOWN INDICATION
     Dosage: 50 MILLIGRAM, QD (PRN)
     Route: 048
  3. CALCIUM + MAGNESIUM [Concomitant]
     Active Substance: CALCIUM\MAGNESIUM
     Indication: PRODUCT USED FOR UNKNOWN INDICATION
     Dosage: UNK
     Route: 065
  4. GABAPENTIN. [Concomitant]
     Active Substance: GABAPENTIN
     Indication: NEURALGIA
     Dosage: 300 MILLIGRAM, QID
     Route: 048
  5. IMIPRAMINE HCL [Concomitant]
     Active Substance: IMIPRAMINE HYDROCHLORIDE
     Indication: PRODUCT USED FOR UNKNOWN INDICATION
     Dosage: 25 MILLIGRAM, HS
     Route: 048
  6. AMPYRA [Suspect]
     Active Substance: DALFAMPRIDINE
     Dosage: 10 MILLIGRAM, BID
     Route: 048
  7. TYSABRI [Concomitant]
     Active Substance: NATALIZUMAB
     Dosage: 300 MILLIGRAM EVERY 6  WEEKS
     Route: 042
  8. AMPYRA [Suspect]
     Active Substance: DALFAMPRIDINE
     Indication: MULTIPLE SCLEROSIS
     Dosage: 10 MILLIGRAM, BID
     Route: 048
     Dates: start: 20130901
  9. AZATHIOPRINE. [Concomitant]
     Active Substance: AZATHIOPRINE
     Indication: PRODUCT USED FOR UNKNOWN INDICATION
     Dosage: UNK
     Route: 065
  10. TYSABRI [Concomitant]
     Active Substance: NATALIZUMAB
     Indication: PRODUCT USED FOR UNKNOWN INDICATION
     Dosage: 300 MILLIGRAM EVERY 5 WEEKS
  11. VITAMIN D3 [Concomitant]
     Active Substance: CHOLECALCIFEROL
     Indication: PRODUCT USED FOR UNKNOWN INDICATION
     Dosage: UNK
     Route: 065

REACTIONS (50)
  - Vitamin D deficiency [Unknown]
  - Bladder dysfunction [Unknown]
  - Diplopia [Unknown]
  - Vision blurred [Unknown]
  - Dysmetria [Unknown]
  - Dysuria [Unknown]
  - Muscular weakness [Recovering/Resolving]
  - Muscle spasms [Unknown]
  - Memory impairment [Unknown]
  - Fatigue [Unknown]
  - Depression [Recovering/Resolving]
  - Anxiety [Unknown]
  - Urinary incontinence [Unknown]
  - Dysphagia [Unknown]
  - Disturbance in attention [Unknown]
  - Sexual dysfunction [Unknown]
  - Pyrexia [Unknown]
  - Ocular hyperaemia [Unknown]
  - Asthenia [Unknown]
  - Weight increased [Unknown]
  - Anal incontinence [Unknown]
  - Snoring [Unknown]
  - Bruxism [Unknown]
  - Lacrimation increased [Unknown]
  - Muscular weakness [Unknown]
  - Peripheral swelling [Unknown]
  - Rash [Unknown]
  - Multiple sclerosis relapse [Unknown]
  - Neuralgia [Unknown]
  - Condition aggravated [Unknown]
  - Hypoacusis [Unknown]
  - Gait disturbance [Unknown]
  - Ill-defined disorder [Unknown]
  - Hypoaesthesia [Unknown]
  - Skin discolouration [Unknown]
  - Thinking abnormal [Unknown]
  - Dysarthria [Unknown]
  - Dry mouth [Unknown]
  - Nocturnal dyspnoea [Unknown]
  - Cognitive disorder [Unknown]
  - Headache [Unknown]
  - Relapsing-remitting multiple sclerosis [Unknown]
  - Pain [Unknown]
  - Neuralgia [Unknown]
  - Temperature intolerance [Unknown]
  - Pollakiuria [Unknown]
  - Balance disorder [Unknown]
  - Multiple sclerosis relapse [Unknown]
  - Dizziness [Recovering/Resolving]
  - Constipation [Unknown]

NARRATIVE: CASE EVENT DATE: 201904
